FAERS Safety Report 11954246 (Version 1)
Quarter: 2016Q1

REPORT INFORMATION
  Report Type: Report from Study
  Country: US (occurrence: US)
  Receive Date: 20160125
  Receipt Date: 20160125
  Transmission Date: 20160526
  Serious: Yes (Hospitalization, Other)
  Sender: FDA-Public Use
  Company Number: US-AMGEN-USASL2016007971

PATIENT
  Age: 57 Year
  Sex: Male

DRUGS (1)
  1. KYPROLIS [Suspect]
     Active Substance: CARFILZOMIB
     Indication: PRODUCT USED FOR UNKNOWN INDICATION
     Dosage: UNK, 2 TIMES/WK
     Route: 065
     Dates: start: 20151202, end: 20160107

REACTIONS (6)
  - Pneumonia [Unknown]
  - Pyrexia [Unknown]
  - Epistaxis [Unknown]
  - Influenza like illness [Unknown]
  - Pulmonary hypertension [Unknown]
  - Asthenia [Unknown]
